FAERS Safety Report 10448201 (Version 2)
Quarter: 2014Q3

REPORT INFORMATION
  Report Type: Spontaneous
  Country: LT (occurrence: LT)
  Receive Date: 20140911
  Receipt Date: 20140919
  Transmission Date: 20150326
  Serious: Yes (Other)
  Sender: FDA-Public Use
  Company Number: LT-GLAXOSMITHKLINE-B1032156A

PATIENT
  Age: 52 Year
  Sex: Male

DRUGS (1)
  1. PAZOPANIB [Suspect]
     Active Substance: PAZOPANIB
     Indication: PANCREATIC NEUROENDOCRINE TUMOUR
     Route: 065
     Dates: start: 20130227, end: 20140822

REACTIONS (5)
  - Brain operation [Unknown]
  - Metastasis [Unknown]
  - Metastases to central nervous system [Unknown]
  - Glioblastoma [Unknown]
  - Off label use [Unknown]

NARRATIVE: CASE EVENT DATE: 20140821
